FAERS Safety Report 19986381 (Version 4)
Quarter: 2021Q4

REPORT INFORMATION
  Report Type: Report from Study
  Country: ES (occurrence: ES)
  Receive Date: 20211022
  Receipt Date: 20211203
  Transmission Date: 20220303
  Serious: Yes (Other)
  Sender: FDA-Public Use
  Company Number: ES-G1-000357

PATIENT
  Age: 58 Year
  Sex: Female
  Weight: 60 kg

DRUGS (26)
  1. TRILACICLIB [Suspect]
     Active Substance: TRILACICLIB
     Indication: Myelosuppression
     Dosage: TIME INTERVAL: CYCLICAL; 240 MG/M2 ON DAY 1 AND 2 OF EACH 14-DAY CYCLE
     Route: 041
     Dates: start: 20210811, end: 20210922
  2. BEVACIZUMAB [Suspect]
     Active Substance: BEVACIZUMAB
     Indication: Colorectal cancer metastatic
     Dosage: TIME INTERVAL: CYCLICAL; 5 MG/KG ON DAY 1 OF EACH 14-DAY CYCLE
     Route: 041
     Dates: start: 20210811, end: 20210825
  3. FLUOROURACIL [Suspect]
     Active Substance: FLUOROURACIL
     Indication: Colorectal cancer metastatic
     Dosage: TIME INTERVAL: CYCLICAL; 3200 MG/M2 BY CONTINUOUS INFUSION OVER 48 HOURS STARTING ON DAY 1 OF EAC...
     Route: 041
     Dates: start: 20210811
  4. FLUOROURACIL [Suspect]
     Active Substance: FLUOROURACIL
     Indication: Colorectal cancer metastatic
     Dosage: TIME INTERVAL: CYCLICAL; 2400 MG/M2 BY CONTINUOUS INFUSION OVER 48 HOURS
     Route: 041
     Dates: start: 20210922, end: 20210923
  5. IRINOTECAN [Suspect]
     Active Substance: IRINOTECAN
     Indication: Colorectal cancer metastatic
     Dosage: TIME INTERVAL: CYCLICAL; 165 MG/M2 ON DAY 1 OF EACH 14-DAY CYCLE
     Route: 041
     Dates: start: 20210811, end: 20210825
  6. IRINOTECAN [Suspect]
     Active Substance: IRINOTECAN
     Indication: Colorectal cancer metastatic
     Dosage: TIME INTERVAL: CYCLICAL; 125  MG/M2 DAY 1 OF EACH CYCLE
     Route: 041
     Dates: start: 20210922
  7. LEUCOVORIN [Suspect]
     Active Substance: LEUCOVORIN
     Indication: Colorectal cancer metastatic
     Dosage: TIME INTERVAL: CYCLICAL; 400 MG/M2 ON DAY 1 OF EACH 14-DAY CYCLE
     Route: 041
     Dates: start: 20210811
  8. OXALIPLATIN [Suspect]
     Active Substance: OXALIPLATIN
     Indication: Colorectal cancer metastatic
     Dosage: TIME INTERVAL: CYCLICAL; 85 MG/M2 ON DAY 1 OF EACH 14-DAY CYCLE
     Route: 041
     Dates: start: 20210811, end: 20210825
  9. OXALIPLATIN [Suspect]
     Active Substance: OXALIPLATIN
     Indication: Colorectal cancer metastatic
     Dosage: TIME INTERVAL: CYCLICAL; 65 MG/M2 ON DAY 1 OF EACH CYCLE
     Route: 041
     Dates: start: 20210922
  10. 4327868 (GLOBALC3Sep20): Imidapril hydrochloride [Concomitant]
     Indication: Hypertension
     Route: 048
     Dates: start: 2017
  11. 4266757 (GLOBALC3Sep20): Atorvastatin [Concomitant]
     Indication: Dyslipidaemia
     Route: 048
     Dates: start: 202105
  12. 1237809 (GLOBALC3Sep20): Lorazepam [Concomitant]
     Indication: Insomnia
     Route: 048
     Dates: start: 2020
  13. 1791329 (GLOBALC3Sep20): Methadone hydrochloride [Concomitant]
     Indication: Cancer pain
     Route: 048
     Dates: start: 202104
  14. 1224221 (GLOBALC3Sep20): Dexamethasone [Concomitant]
     Indication: Premedication
     Route: 042
     Dates: start: 20210811, end: 20210811
  15. 1224221 (GLOBALC3Sep20): Dexamethasone [Concomitant]
     Indication: Premedication
     Route: 048
     Dates: start: 20210825, end: 20210830
  16. 1832871 (GLOBALC3Sep20): Ondansetron [Concomitant]
     Indication: Premedication
     Route: 042
     Dates: start: 20210811, end: 20210812
  17. 1832871 (GLOBALC3Sep20): Ondansetron [Concomitant]
     Indication: Premedication
     Route: 048
     Dates: start: 20210825, end: 20210829
  18. 1222142 (GLOBALC3Sep20): Atropin [Concomitant]
     Indication: Premedication
     Route: 042
     Dates: start: 20210811, end: 20210811
  19. 2734450 (GLOBALC3Sep20): Macrogol [Concomitant]
     Indication: Constipation
     Dosage: 1 SACHET
     Route: 048
     Dates: start: 20210828
  20. 4595744 (GLOBALC3Sep20): Aprepitant [Concomitant]
     Indication: Premedication
     Route: 048
     Dates: start: 20210825, end: 20210825
  21. 4595744 (GLOBALC3Sep20): Aprepitant [Concomitant]
     Indication: Premedication
     Route: 048
     Dates: start: 20210826, end: 20210827
  22. 4123112 (GLOBALC3Sep20): Olanzapin [Concomitant]
     Indication: Premedication
     Route: 048
     Dates: start: 20210825, end: 20210830
  23. 1338610 (GLOBALC3Sep20): Omeprazole [Concomitant]
     Indication: Premedication
     Route: 048
     Dates: start: 20210825, end: 20210830
  24. 4570995 (GLOBALC3Sep20): Piperacillin tazobactam [Concomitant]
     Indication: Pelvic abscess
     Dosage: 4/0.5 G
     Route: 042
     Dates: start: 20210902, end: 20210907
  25. 4416550 (GLOBALC3Sep20): Amoxicillin Clavulanic acid [Concomitant]
     Indication: Pelvic abscess
     Dosage: 875/125 MG
     Route: 048
     Dates: start: 20210908, end: 20210915
  26. 1941474 (GLOBALC3Sep20): Filgrastim [Concomitant]
     Indication: Prophylaxis
     Dates: start: 20210831, end: 20210902

REACTIONS (1)
  - Drug hypersensitivity [Recovered/Resolved]

NARRATIVE: CASE EVENT DATE: 20210922
